FAERS Safety Report 17334108 (Version 4)
Quarter: 2020Q1

REPORT INFORMATION
  Report Type: Report from Study
  Country: KR (occurrence: KR)
  Receive Date: 20200128
  Receipt Date: 20200320
  Transmission Date: 20200409
  Serious: Yes (Hospitalization)
  Sender: FDA-Public Use
  Company Number: KR-JNJFOC-20200126621

PATIENT
  Age: 48 Year
  Sex: Male

DRUGS (22)
  1. METRONIDAZOLE. [Concomitant]
     Active Substance: METRONIDAZOLE
     Indication: ANAL FISTULA
  2. NORMAL SALINE [Concomitant]
     Active Substance: SODIUM CHLORIDE
     Indication: URINARY TRACT INFECTION
     Dates: start: 20200113, end: 20200113
  3. NORMAL SALINE [Concomitant]
     Active Substance: SODIUM CHLORIDE
     Indication: ACUTE KIDNEY INJURY
  4. OSMOTAN [Concomitant]
     Active Substance: DEXTROSE\POTASSIUM CHLORIDE\SODIUM CHLORIDE
     Indication: ACUTE KIDNEY INJURY
     Route: 065
     Dates: start: 20200115
  5. KLENZO [Concomitant]
     Dosage: FOR SENSITIZATION OF WARN SITZ BATH
     Dates: start: 20200119, end: 20200129
  6. METRONIDAZOLE. [Concomitant]
     Active Substance: METRONIDAZOLE
     Indication: ACUTE KIDNEY INJURY
  7. ARONAMIN GOLD [Concomitant]
     Active Substance: ALPHA-TOCOPHEROL ACETATE\ASCORBIC ACID\FURSULTIAMINE\HYDROXOCOBALAMIN ACETATE\RIBOFLAVIN TETRABUTYRATE
     Indication: TREMOR
     Dosage: 1 TABLET
     Route: 065
     Dates: start: 20031011
  8. BEECOM [Concomitant]
     Indication: TREMOR
     Route: 065
     Dates: start: 20030329
  9. LOPMIN [Concomitant]
     Indication: DIARRHOEA
     Dates: start: 20190911, end: 20200121
  10. TRIAXONE [Concomitant]
     Indication: URINARY TRACT INFECTION
     Dates: start: 20200113, end: 20200127
  11. METRONIDAZOLE. [Concomitant]
     Active Substance: METRONIDAZOLE
     Indication: URINARY TRACT INFECTION
     Dates: start: 20200113, end: 20200127
  12. STELARA [Suspect]
     Active Substance: USTEKINUMAB
     Indication: CROHN^S DISEASE
     Route: 042
     Dates: start: 20190731, end: 20190731
  13. TRIAXONE [Concomitant]
     Indication: ACUTE KIDNEY INJURY
  14. METRONIDAZOLE. [Concomitant]
     Active Substance: METRONIDAZOLE
     Indication: ANAL ABSCESS
  15. CHLORPHENIRAMINE MALEATE. [Concomitant]
     Active Substance: CHLORPHENIRAMINE MALEATE
     Dates: start: 20200113, end: 20200113
  16. FEROBA YOU [Concomitant]
     Dates: start: 20090421
  17. STELARA [Suspect]
     Active Substance: USTEKINUMAB
     Route: 058
     Dates: start: 20190925, end: 20190925
  18. FOLIC ACID. [Concomitant]
     Active Substance: FOLIC ACID
     Indication: VITAMIN SUPPLEMENTATION
     Dates: start: 20091112
  19. STELARA [Suspect]
     Active Substance: USTEKINUMAB
     Route: 058
     Dates: start: 20191218, end: 20191218
  20. INDENOL [Concomitant]
     Active Substance: PROPRANOLOL HYDROCHLORIDE
     Indication: TREMOR
     Dates: start: 20111124
  21. CORTISOLU [Concomitant]
     Active Substance: HYDROCORTISONE SODIUM SUCCINATE
     Route: 065
     Dates: start: 20200116, end: 20200116
  22. LOPMIN [Concomitant]
     Indication: DIARRHOEA
     Dates: start: 20200122, end: 20200129

REACTIONS (2)
  - Anal fistula [Recovered/Resolved]
  - Anal abscess [Recovered/Resolved]

NARRATIVE: CASE EVENT DATE: 20191231
